FAERS Safety Report 13875215 (Version 1)
Quarter: 2017Q3

REPORT INFORMATION
  Report Type: Spontaneous
  Country: GB (occurrence: GB)
  Receive Date: 20170816
  Receipt Date: 20170816
  Transmission Date: 20171127
  Serious: Yes (Other)
  Sender: FDA-Public Use
  Company Number: GB-INTERNATIONAL MEDICATION SYSTEMS, LIMITED-2024727

PATIENT
  Age: 63 Year
  Sex: Female

DRUGS (2)
  1. GLUCOSE [Suspect]
     Active Substance: DEXTROSE
     Route: 033
  2. CALCIUM [Suspect]
     Active Substance: CALCIUM
     Route: 033

REACTIONS (2)
  - Fluid overload [Unknown]
  - Dyspnoea [Unknown]
